FAERS Safety Report 10249254 (Version 1)
Quarter: 2014Q2

REPORT INFORMATION
  Report Type: Report from Study
  Country: US (occurrence: US)
  Receive Date: 20140620
  Receipt Date: 20140620
  Transmission Date: 20141212
  Serious: Yes (Other)
  Sender: FDA-Public Use
  Company Number: US-ABBVIE-14P-163-1249373-00

PATIENT
  Age: 29 Year
  Sex: Female

DRUGS (3)
  1. RITONAVIR [Suspect]
     Indication: ANTIRETROVIRAL THERAPY
     Route: 048
  2. DARUNAVIR [Suspect]
     Indication: ANTIRETROVIRAL THERAPY
  3. TENOFOVIR DISOPROXIL FUMARATE/EMTRICITABINE [Suspect]
     Indication: ANTIRETROVIRAL THERAPY
     Route: 048

REACTIONS (2)
  - Stillbirth [Unknown]
  - Exposure during pregnancy [None]
